FAERS Safety Report 9944419 (Version 1)
Quarter: 2014Q1

REPORT INFORMATION
  Report Type: Report from Study
  Country: US (occurrence: US)
  Receive Date: 20140303
  Receipt Date: 20140303
  Transmission Date: 20141002
  Serious: No
  Sender: FDA-Public Use
  Company Number: US-ABBVIE-13P-163-1050215-00

PATIENT
  Age: 51 Year
  Sex: Female

DRUGS (8)
  1. HUMIRA [Suspect]
     Indication: PSORIATIC ARTHROPATHY
     Dates: start: 20130123
  2. METHOTREXATE [Concomitant]
     Indication: PSORIATIC ARTHROPATHY
     Dosage: EVERY FRIDAY
  3. FOLIC ACID [Concomitant]
     Indication: PRODUCT USED FOR UNKNOWN INDICATION
     Dosage: 1MG ON SUN THROUGH WED, 2MG ON THURS THROUGH SAT, SKIPS FRI
  4. LEVOTHYROXINE [Concomitant]
     Indication: THYROID DISORDER
  5. LISINOPRIL [Concomitant]
     Indication: BLOOD PRESSURE
  6. LEXAPRO [Concomitant]
     Indication: DEPRESSION
  7. MULTIVITAMINS [Concomitant]
     Indication: PRODUCT USED FOR UNKNOWN INDICATION
     Dosage: DAILY
  8. MEGA RED FISH OIL [Concomitant]
     Indication: PRODUCT USED FOR UNKNOWN INDICATION
     Dosage: 1 DAILY

REACTIONS (2)
  - Chills [Not Recovered/Not Resolved]
  - Influenza [Not Recovered/Not Resolved]
